FAERS Safety Report 4759879-6 (Version None)
Quarter: 2005Q3

REPORT INFORMATION
  Report Type: 
  Country: None (occurrence: None)
  Receive Date: 20050902
  Receipt Date: 20050824
  Transmission Date: 20060218
  Serious: Yes (Life-Threatening)
  Sender: FDA-Public Use
  Company Number: US-BOEHRINGER INGELHEIM PHARMACEUTICALS, INC.-2005-DE-03389GD

PATIENT
  Age: 53 Year
  Sex: Male

DRUGS (5)
  1. CLONIDINE [Suspect]
     Indication: HYPERTENSION
  2. CLONIDINE [Suspect]
     Route: 062
  3. MIRTAZAPINE [Suspect]
     Indication: MAJOR DEPRESSION
  4. LISINOPRIL [Concomitant]
     Indication: HYPERTENSION
  5. METOPROLOL [Concomitant]
     Indication: HYPERTENSION

REACTIONS (2)
  - DRUG INTERACTION [None]
  - HYPERTENSIVE CRISIS [None]
